FAERS Safety Report 4831908-0 (Version None)
Quarter: 2005Q4

REPORT INFORMATION
  Report Type: 
  Country: None (occurrence: None)
  Receive Date: 20051118
  Receipt Date: 20051031
  Transmission Date: 20060501
  Serious: Yes (Death, Hospitalization)
  Sender: FDA-Public Use
  Company Number: AU-ROCHE-423173

PATIENT
  Age: 79 Year
  Sex: Male
  Weight: 66 kg

DRUGS (7)
  1. CAPECITABINE [Suspect]
     Dosage: TAKEN IN DIVIDED DOSES ON DAYS 1 TO 14 OF EACH 3 WEEK CYCLE.  1ST CYCLE WAS DELAYED DUE TO CAPECITA+
     Route: 048
     Dates: start: 20050824
  2. CAPECITABINE [Suspect]
     Dosage: START OF 3RD CYCLE DELAYED DUE TO GASTROINTESTINAL TOXICITY.
     Route: 048
     Dates: start: 20051005, end: 20051022
  3. INDAPAMIDE [Concomitant]
     Route: 048
     Dates: end: 20051008
  4. LIPITOR [Concomitant]
     Route: 048
     Dates: end: 20051108
  5. NORVASC [Concomitant]
     Route: 048
     Dates: end: 20051108
  6. SORBOLENE [Concomitant]
     Route: 048
     Dates: start: 20051025, end: 20051108
  7. MAXOLON [Concomitant]
     Route: 042
     Dates: start: 20051028, end: 20051104

REACTIONS (7)
  - COLITIS [None]
  - DEHYDRATION [None]
  - DIARRHOEA [None]
  - DRUG TOXICITY [None]
  - FATIGUE [None]
  - INTESTINAL PERFORATION [None]
  - SEPTIC SHOCK [None]
